FAERS Safety Report 21262609 (Version 1)
Quarter: 2022Q3

REPORT INFORMATION
  Report Type: Spontaneous
  Country: RU (occurrence: RU)
  Receive Date: 20220828
  Receipt Date: 20220828
  Transmission Date: 20221026
  Serious: Yes (Hospitalization)
  Sender: FDA-Public Use
  Company Number: RU-JNJFOC-20220540768

PATIENT
  Age: 5 Decade
  Sex: Male
  Weight: 55.1 kg

DRUGS (7)
  1. SIRTURO [Suspect]
     Active Substance: BEDAQUILINE FUMARATE
     Indication: Product used for unknown indication
     Route: 048
     Dates: start: 20220429
  2. LINEZOLID [Suspect]
     Active Substance: LINEZOLID
     Indication: Product used for unknown indication
     Dosage: 600
     Route: 048
     Dates: start: 20220415, end: 20220518
  3. LINEZOLID [Suspect]
     Active Substance: LINEZOLID
     Route: 048
     Dates: start: 20220621
  4. LEVOFLOXACIN [Suspect]
     Active Substance: LEVOFLOXACIN
     Indication: Product used for unknown indication
     Dosage: 1000
     Route: 048
     Dates: start: 20220415
  5. CLOFAZIMINE [Suspect]
     Active Substance: CLOFAZIMINE
     Indication: Product used for unknown indication
     Dosage: 100
     Route: 048
     Dates: start: 20220415
  6. BENFOTIAMINE [Concomitant]
     Active Substance: BENFOTIAMINE
     Indication: Vitamin supplementation
     Dosage: 100
     Dates: start: 20220415
  7. DEXTRIFERRON [Concomitant]
     Active Substance: DEXTRIFERRON
     Indication: Anaemia
     Dosage: 1 TAB
     Dates: start: 20220321

REACTIONS (1)
  - Anaemia [Not Recovered/Not Resolved]

NARRATIVE: CASE EVENT DATE: 20220516
